FAERS Safety Report 10231144 (Version 6)
Quarter: 2014Q2

REPORT INFORMATION
  Report Type: Report from Study
  Country: PL (occurrence: PL)
  Receive Date: 20140611
  Receipt Date: 20140625
  Transmission Date: 20141212
  Serious: Yes (Death, Life-Threatening, Hospitalization, Disabling)
  Sender: FDA-Public Use
  Company Number: PL-TEVA-486730USA

PATIENT
  Age: 66 Year
  Sex: Male

DRUGS (5)
  1. BENDAMUSTINE [Suspect]
     Indication: MANTLE CELL LYMPHOMA
     Route: 042
     Dates: start: 20140423, end: 20140424
  2. RITUXIMAB [Suspect]
     Indication: MANTLE CELL LYMPHOMA
     Dosage: 750 MG, UNK 1 IN 28 DAY
     Route: 042
     Dates: start: 20140423, end: 20140423
  3. AMARYL [Concomitant]
     Indication: TYPE 2 DIABETES MELLITUS
     Route: 048
     Dates: start: 2008
  4. IPRES [Concomitant]
     Indication: HYPERTENSION
     Route: 048
     Dates: start: 2008
  5. SIOFOR [Concomitant]
     Indication: TYPE 2 DIABETES MELLITUS
     Route: 048
     Dates: start: 2008

REACTIONS (1)
  - Cardiopulmonary failure [Fatal]
